FAERS Safety Report 6432849-8 (Version None)
Quarter: 2009Q4

REPORT INFORMATION
  Report Type: 
  Country: None (occurrence: None)
  Receive Date: 20091109
  Receipt Date: 20091102
  Transmission Date: 20100525
  Serious: Yes (Other)
  Sender: FDA-Public Use
  Company Number: B0601749A

PATIENT
  Age: 81 Year
  Sex: Female

DRUGS (2)
  1. PAXIL [Suspect]
     Indication: DRUG USE FOR UNKNOWN INDICATION
     Route: 048
     Dates: start: 20090101, end: 20090101
  2. PAXIL [Suspect]
     Route: 048
     Dates: start: 20090101

REACTIONS (4)
  - EXTRAPYRAMIDAL DISORDER [None]
  - PARKINSONIAN GAIT [None]
  - SEDATION [None]
  - SOMNOLENCE [None]
